FAERS Safety Report 18490227 (Version 1)
Quarter: 2020Q4

REPORT INFORMATION
  Report Type: Spontaneous
  Country: US (occurrence: US)
  Receive Date: 20201111
  Receipt Date: 20201111
  Transmission Date: 20210114
  Serious: Yes (Hospitalization)
  Sender: FDA-Public Use
  Company Number: None

PATIENT
  Age: 60 Year
  Sex: Male
  Weight: 144.7 kg

DRUGS (3)
  1. ACALABRUTINIB. [Suspect]
     Active Substance: ACALABRUTINIB
     Dates: end: 20201102
  2. RITUXIMAB (MOAB C2B8 ANTI CD20, CHIMERIC) [Suspect]
     Active Substance: RITUXIMAB
     Dates: end: 20201027
  3. CYTARABINE. [Suspect]
     Active Substance: CYTARABINE
     Dates: end: 20201029

REACTIONS (7)
  - Agitation [None]
  - Vomiting [None]
  - Repetitive speech [None]
  - Platelet count decreased [None]
  - Mental status changes [None]
  - Platelet transfusion [None]
  - Confusional state [None]

NARRATIVE: CASE EVENT DATE: 20201109
